FAERS Safety Report 24395278 (Version 1)
Quarter: 2024Q4

REPORT INFORMATION
  Report Type: Spontaneous
  Country: FR (occurrence: FR)
  Receive Date: 20241004
  Receipt Date: 20241004
  Transmission Date: 20250114
  Serious: Yes (Hospitalization, Other)
  Sender: SANOFI AVENTIS
  Company Number: None

PATIENT
  Age: 13 Year
  Sex: Male
  Weight: 61.3 kg

DRUGS (1)
  1. RIFATER [Suspect]
     Active Substance: ISONIAZID\PYRAZINAMIDE\RIFAMPIN
     Indication: Tuberculosis
     Dosage: 5 DF, QD
     Route: 048
     Dates: start: 202405

REACTIONS (2)
  - Bicytopenia [Recovered/Resolved]
  - Band neutrophil count decreased [Recovered/Resolved]

NARRATIVE: CASE EVENT DATE: 20240608
